FAERS Safety Report 15186082 (Version 1)
Quarter: 2018Q3

REPORT INFORMATION
  Report Type: Report from Study
  Country: US (occurrence: US)
  Receive Date: 20180723
  Receipt Date: 20180723
  Transmission Date: 20181010
  Serious: No
  Sender: FDA-Public Use
  Company Number: US-EXELIXIS-CABO-17011685

PATIENT
  Sex: Female

DRUGS (16)
  1. OPDIVO [Concomitant]
     Active Substance: NIVOLUMAB
  2. PANTOPRAZOLE [Concomitant]
     Active Substance: PANTOPRAZOLE
  3. HYDROXYZINE [Concomitant]
     Active Substance: HYDROXYZINE HYDROCHLORIDE
  4. AZITHROMYCIN ANHYDROUS. [Concomitant]
     Active Substance: AZITHROMYCIN ANHYDROUS
  5. CIPRO [Concomitant]
     Active Substance: CIPROFLOXACIN HYDROCHLORIDE
  6. FLUCONAZOLE. [Concomitant]
     Active Substance: FLUCONAZOLE
  7. AMLODIPINE [Concomitant]
     Active Substance: AMLODIPINE BESYLATE
  8. CABOMETYX [Suspect]
     Active Substance: CABOZANTINIB S-MALATE
     Indication: RENAL CANCER
     Dosage: 40 MG, QD
     Route: 048
     Dates: start: 20171208
  9. ROSUVASTATIN. [Concomitant]
     Active Substance: ROSUVASTATIN
  10. AMOXICILLIN. [Concomitant]
     Active Substance: AMOXICILLIN
  11. NYSTATIN. [Concomitant]
     Active Substance: NYSTATIN
  12. ALPRAZOLAM. [Concomitant]
     Active Substance: ALPRAZOLAM
  13. TRIAMCINOLON [Concomitant]
  14. VENTOLIN [Concomitant]
     Active Substance: ALBUTEROL SULFATE
  15. ATORVASTATIN [Concomitant]
     Active Substance: ATORVASTATIN
  16. SIMVASTATIN. [Concomitant]
     Active Substance: SIMVASTATIN

REACTIONS (12)
  - Muscle spasms [Unknown]
  - Pain [Unknown]
  - Diarrhoea [Not Recovered/Not Resolved]
  - Blister [Unknown]
  - Skin infection [Unknown]
  - Fatigue [Not Recovered/Not Resolved]
  - Nasopharyngitis [Unknown]
  - Urinary tract infection [Unknown]
  - Nausea [Not Recovered/Not Resolved]
  - Gastrooesophageal reflux disease [Unknown]
  - Dyspepsia [Not Recovered/Not Resolved]
  - Nasal congestion [Unknown]
